FAERS Safety Report 7071376-4 (Version None)
Quarter: 2010Q4

REPORT INFORMATION
  Report Type: 
  Country: None (occurrence: None)
  Receive Date: 20101029
  Receipt Date: 20101019
  Transmission Date: 20110411
  Serious: Yes (Death, Hospitalization)
  Sender: FDA-Public Use
  Company Number: JP-JNJFOC-20101004317

PATIENT
  Age: 71 Year
  Sex: Female

DRUGS (5)
  1. REMICADE [Suspect]
     Indication: RHEUMATOID ARTHRITIS
     Route: 042
  2. ADALIMUMAB [Suspect]
     Indication: RHEUMATOID ARTHRITIS
     Route: 042
  3. ADALIMUMAB [Suspect]
     Route: 042
  4. RHEUMATREX [Suspect]
     Indication: RHEUMATOID ARTHRITIS
  5. PREDNISOLONE [Suspect]
     Indication: RHEUMATOID ARTHRITIS

REACTIONS (3)
  - DRUG EFFECT DECREASED [None]
  - HEPATITIS B [None]
  - SEPSIS [None]
